FAERS Safety Report 25438869 (Version 2)
Quarter: 2025Q2

REPORT INFORMATION
  Report Type: Spontaneous
  Country: US (occurrence: US)
  Receive Date: 20250616
  Receipt Date: 20250630
  Transmission Date: 20250716
  Serious: Yes (Death, Hospitalization, Other)
  Sender: CIPLA
  Company Number: US-CIPLA LTD.-2025US07193

PATIENT

DRUGS (9)
  1. ZONISAMIDE [Suspect]
     Active Substance: ZONISAMIDE
     Indication: Weight decreased
     Route: 065
     Dates: start: 20230614, end: 202306
  2. ZONISAMIDE [Suspect]
     Active Substance: ZONISAMIDE
     Route: 065
     Dates: start: 202306, end: 202306
  3. ZONISAMIDE [Suspect]
     Active Substance: ZONISAMIDE
     Route: 065
     Dates: start: 202306, end: 20230705
  4. LISINOPRIL [Concomitant]
     Active Substance: LISINOPRIL
     Indication: Hypertension
     Route: 065
     Dates: end: 202307
  5. ESTROGENS [Concomitant]
     Active Substance: ESTROGENS
     Indication: Menopause
     Route: 065
     Dates: end: 202307
  6. PRASTERONE [Concomitant]
     Active Substance: PRASTERONE
     Indication: Menopause
     Route: 065
     Dates: end: 202307
  7. PROGESTERONE [Concomitant]
     Active Substance: PROGESTERONE
     Indication: Menopause
     Route: 065
     Dates: end: 202307
  8. TESTOSTERONE [Concomitant]
     Active Substance: TESTOSTERONE
     Indication: Menopause
     Route: 065
     Dates: end: 202307
  9. PREDNISONE [Concomitant]
     Active Substance: PREDNISONE
     Indication: Menopause
     Route: 065

REACTIONS (3)
  - Drug-induced liver injury [Fatal]
  - Drug reaction with eosinophilia and systemic symptoms [Fatal]
  - Off label use [Unknown]

NARRATIVE: CASE EVENT DATE: 20230614
